FAERS Safety Report 16240709 (Version 1)
Quarter: 2019Q2

REPORT INFORMATION
  Report Type: Spontaneous
  Country: FR (occurrence: FR)
  Receive Date: 20190425
  Receipt Date: 20190425
  Transmission Date: 20190711
  Serious: Yes (Life-Threatening, Other)
  Sender: FDA-Public Use
  Company Number: FR-MYLANLABS-2019M1037908

PATIENT
  Age: 87 Year
  Sex: Female

DRUGS (4)
  1. SOLU-MEDROL [Suspect]
     Active Substance: METHYLPREDNISOLONE SODIUM SUCCINATE
     Indication: TONGUE OEDEMA
     Dosage: 120 MILLIGRAM
     Route: 065
     Dates: start: 20120802
  2. EPINEPHRINE. [Suspect]
     Active Substance: EPINEPHRINE
     Indication: PHARYNGEAL OEDEMA
  3. EPINEPHRINE. [Suspect]
     Active Substance: EPINEPHRINE
     Indication: TONGUE OEDEMA
     Dosage: UNK
     Route: 065
     Dates: start: 20120802
  4. EPINEPHRINE. [Suspect]
     Active Substance: EPINEPHRINE
     Indication: RESPIRATORY DISTRESS

REACTIONS (2)
  - Bradycardia [Unknown]
  - Treatment failure [Unknown]

NARRATIVE: CASE EVENT DATE: 20120802
